FAERS Safety Report 15003845 (Version 1)
Quarter: 2018Q2

REPORT INFORMATION
  Report Type: Spontaneous
  Country: FR (occurrence: FR)
  Receive Date: 20180613
  Receipt Date: 20180613
  Transmission Date: 20180711
  Serious: Yes (Other)
  Sender: FDA-Public Use
  Company Number: FR-MERCK KGAA-2049314

PATIENT
  Age: 46 Year
  Sex: Female
  Weight: 77 kg

DRUGS (1)
  1. NOVOTHYROX [Suspect]
     Active Substance: LEVOTHYROXINE SODIUM
     Indication: HYPOTHYROIDISM
     Route: 048
     Dates: start: 201703, end: 20170930

REACTIONS (22)
  - Alopecia [Recovered/Resolved]
  - Hyperhidrosis [Recovered/Resolved]
  - Tremor [Recovered/Resolved]
  - Feeling of body temperature change [Recovered/Resolved]
  - Nausea [Recovered/Resolved]
  - Bone pain [Recovered/Resolved]
  - Weight increased [Recovered/Resolved]
  - Muscle spasms [Recovered/Resolved]
  - Diarrhoea [Recovered/Resolved]
  - Swelling [Recovered/Resolved]
  - Fatigue [Recovering/Resolving]
  - Impaired work ability [Recovered/Resolved]
  - Ear canal erythema [Recovered/Resolved]
  - Palpitations [Recovered/Resolved]
  - Memory impairment [Recovered/Resolved]
  - Migraine [Recovered/Resolved]
  - Vertigo [Recovered/Resolved]
  - Myalgia [Recovered/Resolved]
  - Abdominal pain upper [Not Recovered/Not Resolved]
  - Swelling face [Recovered/Resolved]
  - Vomiting [Recovered/Resolved]
  - Insomnia [Recovered/Resolved]

NARRATIVE: CASE EVENT DATE: 201703
